FAERS Safety Report 7071690-2 (Version None)
Quarter: 2010Q4

REPORT INFORMATION
  Report Type: 
  Country: None (occurrence: None)
  Receive Date: 20101029
  Receipt Date: 20091008
  Transmission Date: 20110411
  Serious: No
  Sender: FDA-Public Use
  Company Number: A0810941A

PATIENT
  Age: 60 Year
  Sex: Female

DRUGS (4)
  1. ADVAIR DISKUS 100/50 [Suspect]
     Indication: WHEEZING
     Dosage: 1PUFF TWICE PER DAY
     Route: 055
     Dates: start: 20090401, end: 20091006
  2. CELEBREX [Concomitant]
  3. BLOOD PRESSURE MEDICATION [Concomitant]
  4. LIPITOR [Concomitant]

REACTIONS (2)
  - GLOSSITIS [None]
  - THROAT IRRITATION [None]
